FAERS Safety Report 9259534 (Version 2)
Quarter: 2013Q3

REPORT INFORMATION
  Report Type: Spontaneous
  Country: US (occurrence: US)
  Receive Date: 20130429
  Receipt Date: 20130812
  Transmission Date: 20140515
  Serious: Yes (Hospitalization, Disabling, Other)
  Sender: FDA-Public Use
  Company Number: US-ASTRAZENECA-2013SE27647

PATIENT
  Age: 53 Year
  Sex: Male

DRUGS (27)
  1. NEXIUM [Suspect]
     Indication: CROHN^S DISEASE
     Route: 048
     Dates: start: 20030313
  2. NEXIUM [Suspect]
     Indication: GASTROINTESTINAL DISORDER
     Route: 048
     Dates: start: 20030313
  3. NEXIUM [Suspect]
     Indication: CROHN^S DISEASE
     Route: 048
     Dates: start: 20040323
  4. NEXIUM [Suspect]
     Indication: GASTROINTESTINAL DISORDER
     Route: 048
     Dates: start: 20040323
  5. PRILOSEC [Suspect]
     Dosage: TWO TIMES A DAY
     Route: 048
  6. PRILOSEC OTC [Suspect]
     Route: 048
     Dates: start: 20050628
  7. PEPCID [Concomitant]
     Dosage: 2 PER DAY
  8. PREVACID/PREVACID OTC [Concomitant]
  9. TAGAMET [Concomitant]
  10. TUMS [Concomitant]
  11. PEPTO-BISMOL [Concomitant]
  12. ROLAIDS [Concomitant]
  13. MYLANTA [Concomitant]
  14. ASACOL [Concomitant]
     Indication: CROHN^S DISEASE
  15. LEVBID [Concomitant]
     Indication: CROHN^S DISEASE
  16. DICYCLOMINE [Concomitant]
     Indication: CROHN^S DISEASE
  17. GABAPENTINE [Concomitant]
     Indication: BACK DISORDER
  18. FLEXERIL [Concomitant]
     Indication: BACK DISORDER
  19. NAPROXEN [Concomitant]
     Indication: BACK DISORDER
  20. DILAUDID [Concomitant]
     Indication: BACK DISORDER
  21. CEPHALEXIN [Concomitant]
     Indication: INFECTION
  22. TRIAMTERENE [Concomitant]
     Indication: FLUID RETENTION
  23. GUANATUSSIN [Concomitant]
     Indication: COUGH
  24. LEVOFLOXACIN [Concomitant]
     Indication: SINUSITIS
  25. PREDNISONE [Concomitant]
  26. ALEVE [Concomitant]
  27. EPIDURAL STEROIDS [Concomitant]
     Dates: start: 20060506

REACTIONS (26)
  - Back disorder [Unknown]
  - Nervous system disorder [Unknown]
  - Limb injury [Unknown]
  - Suicidal ideation [Unknown]
  - Intervertebral disc protrusion [Unknown]
  - Lymphoma [Unknown]
  - Osteoporosis [Unknown]
  - Bone density decreased [Unknown]
  - Multiple fractures [Unknown]
  - Intervertebral disc degeneration [Unknown]
  - Cough [Unknown]
  - Foot fracture [Unknown]
  - Fall [Unknown]
  - Arthropathy [Unknown]
  - Arthritis [Unknown]
  - Pain in extremity [Unknown]
  - Spondylopathy traumatic [Unknown]
  - Spinal osteoarthritis [Unknown]
  - Ligament sprain [Unknown]
  - Radiculitis lumbosacral [Unknown]
  - Vertebral foraminal stenosis [Unknown]
  - Head injury [Unknown]
  - Disturbance in attention [Unknown]
  - Lumbar radiculopathy [Unknown]
  - Malaise [Unknown]
  - Depression [Unknown]
